FAERS Safety Report 12070755 (Version 3)
Quarter: 2016Q2

REPORT INFORMATION
  Report Type: Spontaneous
  Country: US (occurrence: US)
  Receive Date: 20160211
  Receipt Date: 20160420
  Transmission Date: 20160815
  Serious: Yes (Hospitalization, Other)
  Sender: FDA-Public Use
  Company Number: US-GLAXOSMITHKLINE-US2016019456

PATIENT
  Age: 56 Year
  Sex: Female

DRUGS (15)
  1. ALBUTEROL. [Concomitant]
     Active Substance: ALBUTEROL
  2. AMITRIPTYLINE [Concomitant]
     Active Substance: AMITRIPTYLINE
  3. CARVEDILOL. [Concomitant]
     Active Substance: CARVEDILOL
  4. DICLOFENAC [Concomitant]
     Active Substance: DICLOFENAC
  5. ISOSORBIDE. [Concomitant]
     Active Substance: ISOSORBIDE
  6. PERCOCET [Concomitant]
     Active Substance: ACETAMINOPHEN\OXYCODONE HYDROCHLORIDE
  7. ADVAIR DISKUS [Suspect]
     Active Substance: FLUTICASONE PROPIONATE\SALMETEROL XINAFOATE
     Indication: CHRONIC OBSTRUCTIVE PULMONARY DISEASE
     Dosage: 500/50
     Route: 055
     Dates: start: 2013
  8. BABY ASPIRIN [Concomitant]
     Active Substance: ASPIRIN
  9. CITALOPRAM [Concomitant]
     Active Substance: CITALOPRAM HYDROBROMIDE
  10. NITROGLYCERIN. [Concomitant]
     Active Substance: NITROGLYCERIN
  11. FLEXERIL [Concomitant]
     Active Substance: CYCLOBENZAPRINE HYDROCHLORIDE
  12. PREDNISONE. [Concomitant]
     Active Substance: PREDNISONE
  13. LASIX [Concomitant]
     Active Substance: FUROSEMIDE
  14. LISINOPRIL HYDRATE [Concomitant]
     Active Substance: LISINOPRIL
  15. LOVASTATIN. [Concomitant]
     Active Substance: LOVASTATIN

REACTIONS (8)
  - Fluid retention [Unknown]
  - Bronchitis [Unknown]
  - Lung neoplasm malignant [Not Recovered/Not Resolved]
  - Loss of consciousness [Recovered/Resolved]
  - Radiation skin injury [Not Recovered/Not Resolved]
  - Cardiac failure congestive [Unknown]
  - Neoplasm malignant [Unknown]
  - Skin infection [Not Recovered/Not Resolved]

NARRATIVE: CASE EVENT DATE: 201402
